FAERS Safety Report 4430753-8 (Version None)
Quarter: 2004Q3

REPORT INFORMATION
  Report Type: 
  Country: None (occurrence: None)
  Receive Date: 20040818
  Receipt Date: 20040810
  Transmission Date: 20050211
  Serious: Yes (Hospitalization)
  Sender: FDA-Public Use
  Company Number: 2004200623JP

PATIENT
  Age: 54 Year
  Sex: Female

DRUGS (6)
  1. CABERGOLINE [Suspect]
     Indication: PARKINSON'S DISEASE
     Dosage: 2 MG/DAY, ORAL
     Route: 048
     Dates: start: 20020605
  2. ARTANE [Concomitant]
  3. PARLODEL [Concomitant]
  4. SYMMETREL [Concomitant]
  5. LOXONIN (LOXOPROFEN SODIUM) [Concomitant]
  6. PRAVASTATIN SODIUM [Concomitant]

REACTIONS (1)
  - BLOOD CREATINE PHOSPHOKINASE INCREASED [None]
